FAERS Safety Report 9649113 (Version 5)
Quarter: 2015Q1

REPORT INFORMATION
  Report Type: Spontaneous
  Country: US (occurrence: None)
  Receive Date: 20131018
  Receipt Date: 20150120
  Transmission Date: 20150721
  Serious: No
  Sender: FDA-Public Use
  Company Number: AEGR000138

PATIENT
  Age: 56 Year
  Sex: Female
  Weight: 79.4 kg

DRUGS (11)
  1. JUXTAPID [Suspect]
     Active Substance: LOMITAPIDE MESYLATE
     Indication: TYPE IIA HYPERLIPIDAEMIA
     Route: 048
     Dates: start: 201305, end: 2013
  2. CRESTOR [Concomitant]
     Active Substance: ROSUVASTATIN CALCIUM
  3. PLAVIX (CLOPIDOGREL BISULFATE) [Concomitant]
  4. CLIMARA (ESTRADIOL) [Concomitant]
     Active Substance: ESTRADIOL
  5. METFORMIN ER (METFORMIN HYDROCHLORIDE) [Concomitant]
  6. EFFEXOR XR [Concomitant]
     Active Substance: VENLAFAXINE HYDROCHLORIDE
  7. XANAX [Concomitant]
     Active Substance: ALPRAZOLAM
  8. ASA [Concomitant]
     Active Substance: ASPIRIN
  9. VICTOZA [Concomitant]
     Active Substance: LIRAGLUTIDE
  10. ZETIA [Concomitant]
     Active Substance: EZETIMIBE
  11. TRICOR [Concomitant]
     Active Substance: FENOFIBRATE

REACTIONS (5)
  - Weight increased [None]
  - Blood triglycerides increased [None]
  - Diarrhoea [None]
  - Weight decreased [None]
  - Diverticulitis [None]

NARRATIVE: CASE EVENT DATE: 201309
